FAERS Safety Report 9318527 (Version 1)
Quarter: 2013Q2

REPORT INFORMATION
  Report Type: Spontaneous
  Country: US (occurrence: US)
  Receive Date: 20130530
  Receipt Date: 20130530
  Transmission Date: 20140414
  Serious: No
  Sender: FDA-Public Use
  Company Number: US-GLAXOSMITHKLINE-A1016713A

PATIENT
  Sex: Female

DRUGS (1)
  1. VENTOLIN [Suspect]
     Dosage: 2PUFF THREE TIMES PER DAY
     Route: 055

REACTIONS (1)
  - Drug ineffective [Unknown]
